FAERS Safety Report 8482428-6 (Version None)
Quarter: 2012Q3

REPORT INFORMATION
  Report Type: 
  Country: None (occurrence: None)
  Receive Date: 20120702
  Receipt Date: 20120626
  Transmission Date: 20120928
  Serious: Yes (Other)
  Sender: FDA-Public Use
  Company Number: US-GLAXOSMITHKLINE-A0976598A

PATIENT
  Age: 62 Year
  Sex: Male

DRUGS (7)
  1. MEDROL [Concomitant]
  2. VALIUM [Concomitant]
  3. LEVAQUIN [Concomitant]
  4. DEXILANT [Concomitant]
  5. CIPRODEX [Concomitant]
  6. DOXYCYCLINE HYCLATE [Concomitant]
  7. ADVAIR DISKUS 100/50 [Suspect]
     Indication: ASTHMA
     Dosage: 1PUFF PER DAY
     Route: 055

REACTIONS (2)
  - PRODUCT QUALITY ISSUE [None]
  - ASTHMA [None]
